FAERS Safety Report 9269685 (Version 1)
Quarter: 2013Q2

REPORT INFORMATION
  Report Type: Spontaneous
  Country: US (occurrence: US)
  Receive Date: 20130503
  Receipt Date: 20130503
  Transmission Date: 20140414
  Serious: No
  Sender: FDA-Public Use
  Company Number: US-009507513-1305USA000557

PATIENT
  Sex: Female

DRUGS (2)
  1. PRINZIDE [Suspect]
  2. GABAPENTIN [Concomitant]

REACTIONS (1)
  - Diabetes mellitus [Unknown]
